FAERS Safety Report 12599704 (Version 1)
Quarter: 2016Q3

REPORT INFORMATION
  Report Type: Spontaneous
  Country: US (occurrence: US)
  Receive Date: 20160727
  Receipt Date: 20160727
  Transmission Date: 20161109
  Serious: Yes (Other)
  Sender: FDA-Public Use
  Company Number: US-SA-2016SA045804

PATIENT
  Sex: Female

DRUGS (2)
  1. AMBIEN [Suspect]
     Active Substance: ZOLPIDEM TARTRATE
     Dosage: 10MG IN JANUARY
     Route: 048
     Dates: start: 201601
  2. AMBIEN [Suspect]
     Active Substance: ZOLPIDEM TARTRATE
     Dosage: 5MG IN FEBRUARY
     Route: 048
     Dates: start: 201602

REACTIONS (8)
  - Suicidal ideation [Unknown]
  - Depressed mood [Unknown]
  - Hyperhidrosis [Unknown]
  - Drug withdrawal syndrome [Unknown]
  - Muscle spasms [Unknown]
  - Crying [Unknown]
  - Chills [Unknown]
  - Insomnia [Unknown]
